FAERS Safety Report 17910293 (Version 2)
Quarter: 2020Q4

REPORT INFORMATION
  Report Type: Other
  Country: DE (occurrence: DE)
  Receive Date: 20200618
  Receipt Date: 20201017
  Transmission Date: 20210113
  Serious: Yes (Hospitalization)
  Sender: FDA-Public Use
  Company Number: DE-ROCHE-1889238

PATIENT
  Sex: Male
  Weight: 98 kg

DRUGS (3)
  1. METHOTREXATE. [Concomitant]
     Active Substance: METHOTREXATE
  2. PREDNISOLON [Concomitant]
     Active Substance: PREDNISOLONE
     Indication: RHEUMATOID ARTHRITIS
     Route: 048
     Dates: start: 20150801
  3. TOCILIZUMAB. [Suspect]
     Active Substance: TOCILIZUMAB
     Indication: RHEUMATOID ARTHRITIS
     Route: 058
     Dates: start: 20150806, end: 20170202

REACTIONS (2)
  - Upper respiratory tract infection [Recovered/Resolved]
  - Lung abscess [Recovered/Resolved]

NARRATIVE: CASE EVENT DATE: 20161215
